FAERS Safety Report 22383685 (Version 1)
Quarter: 2023Q2

REPORT INFORMATION
  Report Type: Spontaneous
  Country: US (occurrence: US)
  Receive Date: 20230530
  Receipt Date: 20230530
  Transmission Date: 20230721
  Serious: No
  Sender: FDA-Public Use
  Company Number: US-PERRIGO-23US001477

PATIENT
  Age: 79 Year
  Sex: Female
  Weight: 55.329 kg

DRUGS (6)
  1. MINOXIDIL [Suspect]
     Active Substance: MINOXIDIL
     Indication: Alopecia
     Dosage: HALF CAPFUL, QD
     Route: 061
     Dates: start: 20230101, end: 202301
  2. MINOXIDIL [Suspect]
     Active Substance: MINOXIDIL
     Indication: Accidental exposure to product
     Dosage: UNKNOWN AMOUNT OF LIQUID, QD
     Route: 061
     Dates: start: 202301, end: 202301
  3. MINOXIDIL [Suspect]
     Active Substance: MINOXIDIL
     Dosage: HALF CAPFUL, QD
     Route: 061
     Dates: start: 20230116, end: 20230123
  4. MINOXIDIL [Suspect]
     Active Substance: MINOXIDIL
     Dosage: UNKNOWN AMOUNT OF LIQUID, QD
     Route: 061
     Dates: start: 20230124, end: 20230126
  5. MINOXIDIL [Suspect]
     Active Substance: MINOXIDIL
     Dosage: UNKNOWN AMOUNT OF LIQUID, SINGLE
     Route: 047
     Dates: start: 20230124, end: 20230124
  6. MINOXIDIL [Suspect]
     Active Substance: MINOXIDIL
     Dosage: UNKNOWN AMOUNT OF LIQUID, SINGLE
     Route: 047
     Dates: start: 20230126, end: 20230126

REACTIONS (2)
  - Accidental exposure to product [Unknown]
  - Wrong technique in product usage process [Unknown]

NARRATIVE: CASE EVENT DATE: 20230101
